FAERS Safety Report 19056303 (Version 4)
Quarter: 2021Q2

REPORT INFORMATION
  Report Type: Spontaneous
  Country: GB (occurrence: GB)
  Receive Date: 20210325
  Receipt Date: 20210426
  Transmission Date: 20210717
  Serious: Yes (Other)
  Sender: FDA-Public Use
  Company Number: GB-TEVA-2021-XI-1892675

PATIENT
  Age: 57 Year
  Sex: Female
  Weight: 57 kg

DRUGS (7)
  1. MICONAZOLE. [Suspect]
     Active Substance: MICONAZOLE
     Indication: ORAL CANDIDIASIS
     Dosage: 20MG/G
     Route: 048
     Dates: start: 20210217, end: 20210217
  2. BECLOMETASONE [Concomitant]
     Active Substance: BECLOMETHASONE DIPROPIONATE
     Indication: ILL-DEFINED DISORDER
  3. DAKTARIN [Suspect]
     Active Substance: MICONAZOLE NITRATE
     Indication: ORAL CANDIDIASIS
     Dosage: 20MG/G
     Route: 048
     Dates: start: 20210217, end: 20210217
  4. ESTRADIOL. [Concomitant]
     Active Substance: ESTRADIOL
     Indication: ILL-DEFINED DISORDER
  5. NYSTATIN. [Suspect]
     Active Substance: NYSTATIN
     Indication: ORAL CANDIDIASIS
     Dosage: 1ML
     Route: 048
     Dates: start: 20210225, end: 20210226
  6. FLUCONAZOLE. [Suspect]
     Active Substance: FLUCONAZOLE
     Indication: ORAL CANDIDIASIS
     Dosage: 50MG
     Route: 048
     Dates: start: 20210218, end: 20210224
  7. LANSOPRAZOLE. [Concomitant]
     Active Substance: LANSOPRAZOLE
     Indication: ILL-DEFINED DISORDER

REACTIONS (1)
  - Face oedema [Recovered/Resolved]

NARRATIVE: CASE EVENT DATE: 20210217
